FAERS Safety Report 7814915-5 (Version None)
Quarter: 2011Q4

REPORT INFORMATION
  Report Type: 
  Country: None (occurrence: None)
  Receive Date: 20111014
  Receipt Date: 20111003
  Transmission Date: 20120403
  Serious: Yes (Hospitalization)
  Sender: FDA-Public Use
  Company Number: US-BAYER-2011-007526

PATIENT
  Age: 28 Year
  Sex: Female
  Weight: 77.098 kg

DRUGS (8)
  1. YASMIN [Suspect]
     Indication: CONTRACEPTION
     Dosage: UNK
     Route: 048
     Dates: start: 20031117, end: 20041122
  2. ANTIBIOTICS [Concomitant]
     Route: 042
  3. RELPAX [Concomitant]
  4. YAZ [Suspect]
     Indication: CONTRACEPTION
     Dosage: UNK
     Route: 048
     Dates: start: 20071108, end: 20090401
  5. YAZ [Suspect]
     Dosage: UNK
     Dates: start: 20071101, end: 20090401
  6. IBUPROFEN [Concomitant]
     Dosage: 400 MG, UNK
     Route: 048
     Dates: start: 19940101
  7. YASMIN [Suspect]
     Dosage: UNK
     Dates: start: 20071101, end: 20090401
  8. ZOSYN [Concomitant]

REACTIONS (6)
  - CHOLELITHIASIS [None]
  - PAIN [None]
  - CHOLECYSTITIS [None]
  - EMOTIONAL DISTRESS [None]
  - ABDOMINAL PAIN [None]
  - BILE DUCT STONE [None]
